APPROVED DRUG PRODUCT: NIFEDIPINE
Active Ingredient: NIFEDIPINE
Strength: 30MG
Dosage Form/Route: TABLET, EXTENDED RELEASE;ORAL
Application: A077127 | Product #001 | TE Code: AB2
Applicant: OSMOTICA PHARMACEUTICAL US LLC
Approved: Nov 21, 2005 | RLD: No | RS: No | Type: RX